FAERS Safety Report 5430313-6 (Version None)
Quarter: 2007Q3

REPORT INFORMATION
  Report Type: 
  Country: None (occurrence: None)
  Receive Date: 20070830
  Receipt Date: 20070824
  Transmission Date: 20080115
  Serious: Yes (Other)
  Sender: FDA-Public Use
  Company Number: PHBS2007JP12614

PATIENT
  Age: 81 Year
  Sex: Female

DRUGS (2)
  1. TEGRETOL [Suspect]
     Indication: TRIGEMINAL NEURALGIA
     Dosage: 200 MG, BID
     Route: 048
     Dates: start: 20060601
  2. LIORESAL [Suspect]
     Dosage: 10 MG, BID
     Route: 048
     Dates: start: 20060601

REACTIONS (2)
  - OEDEMA PERIPHERAL [None]
  - RENAL IMPAIRMENT [None]
